FAERS Safety Report 6657721-X (Version None)
Quarter: 2010Q1

REPORT INFORMATION
  Report Type: 
  Country: None (occurrence: None)
  Receive Date: 20100330
  Receipt Date: 20100317
  Transmission Date: 20100710
  Serious: No
  Sender: FDA-Public Use
  Company Number: US-B.I. PHARMACEUTICALS,INC./RIDGEFIELD-2010-BP-02237BP

PATIENT
  Sex: Female

DRUGS (17)
  1. SPIRIVA [Suspect]
     Indication: CHRONIC OBSTRUCTIVE PULMONARY DISEASE
     Dosage: 18 MCG
     Route: 055
     Dates: start: 20090101, end: 20100220
  2. SPIRIVA [Suspect]
     Indication: ASTHMA
     Dosage: 18 MCG
     Route: 055
     Dates: start: 20100201
  3. SEREVENT [Concomitant]
     Indication: ASTHMA
  4. SEREVENT [Concomitant]
     Indication: CHRONIC OBSTRUCTIVE PULMONARY DISEASE
  5. QUAR [Concomitant]
     Indication: ASTHMA
  6. QUAR [Concomitant]
     Indication: CHRONIC OBSTRUCTIVE PULMONARY DISEASE
  7. PROTONIX [Concomitant]
     Indication: GASTROOESOPHAGEAL REFLUX DISEASE
  8. ALBUTEROL [Concomitant]
     Indication: ASTHMA
  9. ALBUTEROL [Concomitant]
     Indication: CHRONIC OBSTRUCTIVE PULMONARY DISEASE
  10. THEOPHYLLINE [Concomitant]
     Indication: ASTHMA
  11. THEOPHYLLINE [Concomitant]
     Indication: CHRONIC OBSTRUCTIVE PULMONARY DISEASE
  12. ZYRTEC [Concomitant]
     Indication: ASTHMA
  13. ZYRTEC [Concomitant]
     Indication: CHRONIC OBSTRUCTIVE PULMONARY DISEASE
  14. VERAPAMIL [Concomitant]
     Indication: MITRAL VALVE PROLAPSE
  15. LISINOPRIL [Concomitant]
     Indication: HYPERTENSION
  16. ASACOL [Concomitant]
     Indication: COLITIS ULCERATIVE
  17. VITAMINS [Concomitant]
     Indication: PROPHYLAXIS

REACTIONS (2)
  - ERYTHEMA [None]
  - OEDEMA PERIPHERAL [None]
